FAERS Safety Report 24943132 (Version 1)
Quarter: 2025Q1

REPORT INFORMATION
  Report Type: Spontaneous
  Country: US (occurrence: US)
  Receive Date: 20250207
  Receipt Date: 20250207
  Transmission Date: 20250409
  Serious: No
  Sender: TORRENT PHARMA INC.
  Company Number: US-TORRENT-00014204

PATIENT
  Age: 72 Year
  Sex: Male
  Weight: 80 kg

DRUGS (4)
  1. TIOPRONIN [Suspect]
     Active Substance: TIOPRONIN
     Indication: Cystinuria
     Dosage: 100 MG 1 TABLET 3 TIMES A DAY
     Route: 065
     Dates: start: 20240530
  2. ASPIRIN [Concomitant]
     Active Substance: ASPIRIN
     Indication: Product used for unknown indication
     Route: 065
  3. DOXYCYCLINE HYCLATE [Concomitant]
     Active Substance: DOXYCYCLINE HYCLATE
     Indication: Product used for unknown indication
     Dosage: 1 TABLET TWICE A DAY
     Route: 065
  4. POTASSIUM CITRATE [Concomitant]
     Active Substance: POTASSIUM CITRATE
     Indication: Product used for unknown indication
     Route: 065

REACTIONS (1)
  - Dysphagia [Not Recovered/Not Resolved]

NARRATIVE: CASE EVENT DATE: 20250124
